FAERS Safety Report 7216321-3 (Version None)
Quarter: 2011Q1

REPORT INFORMATION
  Report Type: 
  Country: None (occurrence: None)
  Receive Date: 20110107
  Receipt Date: 20101231
  Transmission Date: 20110831
  Serious: Yes (Other)
  Sender: FDA-Public Use
  Company Number: US-JNJFOC-20110101104

PATIENT
  Sex: Male

DRUGS (2)
  1. TYLENOL W/ CODEINE NO. 3 [Suspect]
     Indication: ARTHRITIS
     Route: 065
  2. DIOVAN [Interacting]
     Indication: HYPERTENSION
     Route: 065

REACTIONS (4)
  - CHILLS [None]
  - TREMOR [None]
  - DRUG INTERACTION [None]
  - SHOCK [None]
